FAERS Safety Report 12113345 (Version 2)
Quarter: 2016Q1

REPORT INFORMATION
  Report Type: Spontaneous
  Country: GB (occurrence: GB)
  Receive Date: 20160225
  Receipt Date: 20160303
  Transmission Date: 20160526
  Serious: Yes (Other)
  Sender: FDA-Public Use
  Company Number: GB-ROCHE-1705776

PATIENT
  Sex: Female

DRUGS (2)
  1. TAXOL [Suspect]
     Active Substance: PACLITAXEL
     Indication: PRODUCT USED FOR UNKNOWN INDICATION
     Route: 065
  2. AVASTIN [Suspect]
     Active Substance: BEVACIZUMAB
     Indication: PRODUCT USED FOR UNKNOWN INDICATION
     Route: 065

REACTIONS (14)
  - Cognitive disorder [Unknown]
  - Carbohydrate antigen 125 increased [Unknown]
  - Gait disturbance [Unknown]
  - Fatigue [Unknown]
  - Dysarthria [Unknown]
  - Headache [Unknown]
  - Nausea [Unknown]
  - Alopecia [Unknown]
  - Memory impairment [Unknown]
  - Swelling face [Unknown]
  - Vomiting [Unknown]
  - Urinary incontinence [Unknown]
  - Increased appetite [Unknown]
  - Anal incontinence [Unknown]
